FAERS Safety Report 6373224-4 (Version None)
Quarter: 2009Q3

REPORT INFORMATION
  Report Type: 
  Country: None (occurrence: None)
  Receive Date: 20090924
  Receipt Date: 20090115
  Transmission Date: 20100115
  Serious: No
  Sender: FDA-Public Use
  Company Number: US-ASTRAZENECA-2009UW01342

PATIENT
  Sex: Male

DRUGS (10)
  1. SEROQUEL [Suspect]
     Dosage: 50 MG
     Route: 048
     Dates: start: 20070801
  2. VIREAD [Concomitant]
  3. SERTRALINE HCL [Concomitant]
  4. BENZOTROPINE MESYLATE [Concomitant]
  5. METFORMIN HCL [Concomitant]
  6. NORVIR [Concomitant]
  7. ZIAGEN [Concomitant]
  8. NORTRIPTYLINE HCL [Concomitant]
  9. ENALAPRIL MALEATE [Concomitant]
  10. HUMULIN R [Concomitant]

REACTIONS (1)
  - DRUG ABUSE [None]
